FAERS Safety Report 20582164 (Version 1)
Quarter: 2022Q1

REPORT INFORMATION
  Report Type: Spontaneous
  Country: US (occurrence: None)
  Receive Date: 20220310
  Receipt Date: 20220310
  Transmission Date: 20220423
  Serious: Yes (Death)
  Sender: FDA-Public Use
  Company Number: None

PATIENT
  Sex: Male

DRUGS (2)
  1. TOBRAMYCIN [Suspect]
     Active Substance: TOBRAMYCIN
     Indication: Complications of transplanted lung
     Dosage: 300 MG/5ML??INHALE ONE AMPULE VIA NEBULIZER EVERY 12 HOURS, ONE MONTH ON,ONE MONTH OFF?
     Route: 055
     Dates: start: 20210429
  2. ACITRETIN CAP 10MG [Concomitant]

REACTIONS (1)
  - Death [None]
